FAERS Safety Report 19837273 (Version 3)
Quarter: 2021Q4

REPORT INFORMATION
  Report Type: Spontaneous
  Country: None (occurrence: US)
  Receive Date: 20210914
  Receipt Date: 20211025
  Transmission Date: 20220303
  Serious: Yes (Other)
  Sender: FDA-Public Use
  Company Number: US-VIFOR (INTERNATIONAL) INC.-VIT-2021-07012

PATIENT
  Age: 77 Year
  Sex: Female

DRUGS (7)
  1. VELTASSA [Suspect]
     Active Substance: PATIROMER
     Indication: Hyperkalaemia
  2. VELTASSA [Suspect]
     Active Substance: PATIROMER
     Indication: Renal tubular acidosis
  3. AMLODIPINE [Concomitant]
     Active Substance: AMLODIPINE BESYLATE
     Indication: Hypertension
  4. POTASSIUM [Concomitant]
     Active Substance: POTASSIUM
     Route: 048
  5. FUROSEMIDE [Concomitant]
     Active Substance: FUROSEMIDE
     Indication: Hyperkalaemia
  6. ETHACRYNIC ACID [Concomitant]
     Active Substance: ETHACRYNIC ACID
     Indication: Hyperkalaemia
  7. ETHACRYNIC ACID [Concomitant]
     Active Substance: ETHACRYNIC ACID

REACTIONS (4)
  - Polycythaemia vera [Unknown]
  - Pseudohyperkalaemia [Recovered/Resolved]
  - Hypoaesthesia oral [Unknown]
  - Peripheral swelling [Unknown]
